FAERS Safety Report 11315926 (Version 1)
Quarter: 2015Q3

REPORT INFORMATION
  Report Type: Spontaneous
  Country: GB (occurrence: GB)
  Receive Date: 20150728
  Receipt Date: 20150728
  Transmission Date: 20151125
  Serious: Yes (Hospitalization)
  Sender: FDA-Public Use
  Company Number: GB-TEVA-580318ACC

PATIENT
  Age: 75 Year
  Sex: Male
  Weight: 61 kg

DRUGS (4)
  1. BISOPROLOL [Concomitant]
     Active Substance: BISOPROLOL
  2. FUROSEMIDE. [Concomitant]
     Active Substance: FUROSEMIDE
  3. NICOTINE. [Concomitant]
     Active Substance: NICOTINE
  4. WARFARIN SODIUM. [Suspect]
     Active Substance: WARFARIN SODIUM
     Indication: ATRIAL FIBRILLATION
     Dosage: 1 MILLIGRAM DAILY;
     Route: 048
     Dates: start: 20150608, end: 20150710

REACTIONS (6)
  - Headache [Unknown]
  - Musculoskeletal pain [Unknown]
  - Dysarthria [Unknown]
  - Haemorrhage intracranial [Recovered/Resolved]
  - Nystagmus [Unknown]
  - Pain in extremity [Unknown]

NARRATIVE: CASE EVENT DATE: 20150618
